FAERS Safety Report 9241642 (Version 5)
Quarter: 2013Q3

REPORT INFORMATION
  Report Type: Spontaneous
  Country: GB (occurrence: GB)
  Receive Date: 20130419
  Receipt Date: 20130718
  Transmission Date: 20140515
  Serious: Yes (Other)
  Sender: FDA-Public Use
  Company Number: GB-JNJFOC-20130405772

PATIENT
  Age: 73 Year
  Sex: Female
  Weight: 110 kg

DRUGS (2)
  1. STELARA [Suspect]
     Indication: PSORIASIS
     Route: 058
     Dates: start: 20130312
  2. STELARA [Suspect]
     Indication: PSORIASIS
     Route: 058
     Dates: start: 20130410

REACTIONS (12)
  - Psoriasis [Recovering/Resolving]
  - Blood creatinine increased [Recovered/Resolved]
  - Skin burning sensation [Recovering/Resolving]
  - Rash vesicular [Recovering/Resolving]
  - Oropharyngeal pain [Recovering/Resolving]
  - Dizziness [Recovering/Resolving]
  - Myalgia [Recovering/Resolving]
  - Fatigue [Recovering/Resolving]
  - Joint swelling [Recovering/Resolving]
  - Pruritus [Unknown]
  - Feeling of body temperature change [Unknown]
  - Drug ineffective [Unknown]
